FAERS Safety Report 8809179 (Version 1)
Quarter: 2012Q4

REPORT INFORMATION
  Report Type: Spontaneous
  Country: US (occurrence: None)
  Receive Date: 20120921
  Receipt Date: 20120921
  Transmission Date: 20130627
  Serious: Yes (Hospitalization)
  Sender: FDA-Public Use
  Company Number: None

PATIENT
  Age: 64 Year
  Sex: Female
  Weight: 92.53 kg

DRUGS (1)
  1. IPILIMUMAB [Suspect]
     Indication: MELANOMA
     Route: 042
     Dates: start: 20120815, end: 20121017

REACTIONS (1)
  - Dyspnoea [None]
